FAERS Safety Report 21052567 (Version 1)
Quarter: 2022Q3

REPORT INFORMATION
  Report Type: Spontaneous
  Country: AU (occurrence: AU)
  Receive Date: 20220707
  Receipt Date: 20220707
  Transmission Date: 20221027
  Serious: Yes (Other)
  Sender: FDA-Public Use
  Company Number: AU-MYLANLABS-2022M1050959

PATIENT
  Age: 39 Year
  Sex: Male

DRUGS (6)
  1. TRAMADOL [Suspect]
     Active Substance: TRAMADOL
     Indication: Pain
     Dosage: 1 DOSAGE FORM, BID, FORMULATION: SLOW RELEASE
     Route: 065
  2. TRAMADOL [Suspect]
     Active Substance: TRAMADOL
     Dosage: UNK, UP TO THREE TABLETS (ABUSE); FORMULATION: SLOW RELEASE
     Route: 065
  3. TRAMADOL [Suspect]
     Active Substance: TRAMADOL
     Indication: Pain
     Dosage: ONE TO TWO TABLETS PRN UP TO THREE TIMES DAILY; FORMULATION: IMMEDIATE RELEASE
     Route: 065
  4. TRAMADOL [Suspect]
     Active Substance: TRAMADOL
     Dosage: UNK, QD UP TO EIGHT TABLETS (ABUSE); FORMULATION: IMMEDIATE RELEASE
     Route: 065
  5. DESVENLAFAXINE SUCCINATE [Suspect]
     Active Substance: DESVENLAFAXINE SUCCINATE
     Indication: Depression
     Dosage: 50 MILLIGRAM, QD, DAILY
     Route: 065
  6. DESVENLAFAXINE SUCCINATE [Suspect]
     Active Substance: DESVENLAFAXINE SUCCINATE
     Dosage: UNK, 100 OR 150MG (ABUSE)
     Route: 065

REACTIONS (3)
  - Acute psychosis [Recovered/Resolved]
  - Drug abuse [Recovered/Resolved]
  - Condition aggravated [Recovered/Resolved]
